FAERS Safety Report 7983379-3 (Version None)
Quarter: 2011Q4

REPORT INFORMATION
  Report Type: 
  Country: None (occurrence: None)
  Receive Date: 20111215
  Receipt Date: 20111209
  Transmission Date: 20120403
  Serious: No
  Sender: FDA-Public Use
  Company Number: US-B.I. PHARMACEUTICALS,INC./RIDGEFIELD-2011-BP-27759BP

PATIENT
  Sex: Female

DRUGS (2)
  1. SPIRIVA [Suspect]
     Indication: ASTHMA
     Dosage: 18 MCG
     Route: 055
     Dates: start: 20110301
  2. SPIRIVA [Suspect]
     Indication: BRONCHITIS
     Route: 048
     Dates: start: 20111209, end: 20111209

REACTIONS (1)
  - INCORRECT ROUTE OF DRUG ADMINISTRATION [None]
